FAERS Safety Report 8936707 (Version 1)
Quarter: 2012Q4

REPORT INFORMATION
  Report Type: 
  Country: CO (occurrence: CO)
  Receive Date: 20121130
  Receipt Date: 20121130
  Transmission Date: 20130627
  Serious: Yes (Death)
  Sender: FDA-Public Use
  Company Number: CO-ROCHE-1162607

PATIENT
  Age: 83 Year
  Sex: Female

DRUGS (4)
  1. LUCENTIS [Suspect]
     Indication: VISUAL ACUITY REDUCED
     Route: 050
     Dates: start: 20111103
  2. LEVOTHYROXINE [Concomitant]
  3. CALCITRIOL [Concomitant]
  4. ACETAMINOPHEN [Concomitant]

REACTIONS (1)
  - Lung neoplasm malignant [Fatal]
